FAERS Safety Report 23644982 (Version 1)
Quarter: 2024Q1

REPORT INFORMATION
  Report Type: Report from Study
  Country: US (occurrence: US)
  Receive Date: 20240318
  Receipt Date: 20240318
  Transmission Date: 20240410
  Serious: Yes (Hospitalization, Other)
  Sender: FDA-Public Use
  Company Number: US-BAYER-2024A028218

PATIENT
  Age: 51 Year
  Sex: Male

DRUGS (3)
  1. STIVARGA [Suspect]
     Active Substance: REGORAFENIB
     Indication: Rectal cancer
     Dosage: 160 MG, QD (ON DAYS 1 THROUGH 21 OF EACH 28 DAY CYCLE  )
     Route: 048
     Dates: start: 20240206
  2. STIVARGA [Suspect]
     Active Substance: REGORAFENIB
     Indication: Colon cancer
  3. LONSURF [Concomitant]
     Active Substance: TIPIRACIL HYDROCHLORIDE\TRIFLURIDINE
     Dosage: 75 MG, BID 15MG/6.14MG ORAL. TAKE 5 TABLETS (75 MG) TWICE DAILY ON DAYS 1- 5 AND 8-12 OF EACH 28 CYC

REACTIONS (13)
  - Seizure [Recovering/Resolving]
  - Cardiac failure [Recovering/Resolving]
  - Hospitalisation [Recovering/Resolving]
  - Blood sodium decreased [Recovering/Resolving]
  - Pyrexia [Recovering/Resolving]
  - Skin wrinkling [Not Recovered/Not Resolved]
  - Throat irritation [Unknown]
  - Stomatitis [Unknown]
  - Fatigue [Unknown]
  - Oropharyngeal pain [Not Recovered/Not Resolved]
  - Dysphonia [Not Recovered/Not Resolved]
  - Oral pain [Not Recovered/Not Resolved]
  - Sensitive skin [Not Recovered/Not Resolved]

NARRATIVE: CASE EVENT DATE: 20240218
